FAERS Safety Report 7520361-4 (Version None)
Quarter: 2011Q2

REPORT INFORMATION
  Report Type: 
  Country: None (occurrence: None)
  Receive Date: 20110602
  Receipt Date: 20110530
  Transmission Date: 20111010
  Serious: Yes (Death)
  Sender: FDA-Public Use
  Company Number: PHHY2011US47362

PATIENT
  Sex: Female

DRUGS (4)
  1. CARBOPLATIN [Suspect]
     Dosage: UNK
     Route: 042
  2. ERLOTINIB HYDROCHLORIDE [Suspect]
     Dosage: 150 MG, UNK
     Route: 048
  3. ERLOTINIB HYDROCHLORIDE [Suspect]
     Dosage: 50 MG, UNK
     Route: 048
  4. DOCETAXEL [Suspect]
     Dosage: 75 MG/M2, UNK
     Route: 042

REACTIONS (1)
  - ENTEROCOLITIS BACTERIAL [None]
